FAERS Safety Report 24623941 (Version 1)
Quarter: 2024Q4

REPORT INFORMATION
  Report Type: Spontaneous
  Country: US (occurrence: None)
  Receive Date: 20241115
  Receipt Date: 20241115
  Transmission Date: 20250115
  Serious: Yes (Death, Hospitalization)
  Sender: Public
  Company Number: None

PATIENT
  Age: 76 Year
  Sex: Male
  Weight: 65 kg

DRUGS (2)
  1. BUPRENORPHINE [Suspect]
     Active Substance: BUPRENORPHINE
     Indication: Pain
     Dosage: 5.00 MG  QWEEK TOPICAL ?
     Route: 061
     Dates: start: 20240506, end: 20240604
  2. HYDROCODONE [Suspect]
     Active Substance: HYDROCODONE

REACTIONS (5)
  - Confusional state [None]
  - Aggression [None]
  - Agitation [None]
  - Poor quality sleep [None]
  - Acute kidney injury [None]

NARRATIVE: CASE EVENT DATE: 20240528
